FAERS Safety Report 14462389 (Version 3)
Quarter: 2018Q2

REPORT INFORMATION
  Report Type: Spontaneous
  Country: US (occurrence: US)
  Receive Date: 20180130
  Receipt Date: 20180510
  Transmission Date: 20180711
  Serious: Yes (Death, Hospitalization)
  Sender: FDA-Public Use
  Company Number: US-ACTELION-A-NJ2018-166672

PATIENT
  Age: 75 Year
  Sex: Female
  Weight: 63.39 kg

DRUGS (9)
  1. LEVOTHYROXINE. [Concomitant]
     Active Substance: LEVOTHYROXINE
  2. OPSUMIT [Suspect]
     Active Substance: MACITENTAN
     Indication: PULMONARY HYPERTENSION
     Dosage: 10 MG, UNK
     Route: 048
     Dates: start: 20121229
  3. ALBUTEROL. [Concomitant]
     Active Substance: ALBUTEROL
  4. GABAPENTIN. [Concomitant]
     Active Substance: GABAPENTIN
  5. TYVASO [Concomitant]
     Active Substance: TREPROSTINIL
     Dosage: UNK
     Dates: end: 20180312
  6. UPTRAVI [Suspect]
     Active Substance: SELEXIPAG
     Indication: PULMONARY HYPERTENSION
     Dosage: 200 MCG, BID
     Route: 048
  7. SILDENAFIL. [Concomitant]
     Active Substance: SILDENAFIL
  8. IRON [Concomitant]
     Active Substance: IRON
  9. BUMETANIDE. [Concomitant]
     Active Substance: BUMETANIDE

REACTIONS (4)
  - Asthenia [Recovering/Resolving]
  - Hypoxia [Recovering/Resolving]
  - Death [Fatal]
  - Pneumonia [Unknown]

NARRATIVE: CASE EVENT DATE: 20180316
